FAERS Safety Report 6996427-4 (Version None)
Quarter: 2010Q3

REPORT INFORMATION
  Report Type: 
  Country: None (occurrence: None)
  Receive Date: 20100918
  Receipt Date: 20090212
  Transmission Date: 20110219
  Serious: No
  Sender: FDA-Public Use
  Company Number: US-WYE-H08190609

PATIENT
  Sex: Female

DRUGS (5)
  1. EFFEXOR XR [Suspect]
     Indication: DEPRESSION
     Route: 048
     Dates: start: 20060101, end: 20080101
  2. EFFEXOR XR [Suspect]
     Route: 048
     Dates: start: 20080101, end: 20081201
  3. EFFEXOR XR [Suspect]
     Route: 048
     Dates: start: 20081201
  4. EFFEXOR XR [Suspect]
     Route: 048
  5. SYNTHROID [Concomitant]

REACTIONS (4)
  - AFFECT LABILITY [None]
  - DRUG INEFFECTIVE [None]
  - DRUG WITHDRAWAL SYNDROME [None]
  - TINNITUS [None]
